FAERS Safety Report 10171350 (Version 1)
Quarter: 2014Q2

REPORT INFORMATION
  Report Type: Spontaneous
  Country: US (occurrence: US)
  Receive Date: 20140514
  Receipt Date: 20140514
  Transmission Date: 20141212
  Serious: Yes (Other)
  Sender: FDA-Public Use
  Company Number: US-ASTRAZENECA-2014SE31596

PATIENT
  Age: 56 Year
  Sex: Female
  Weight: 70.3 kg

DRUGS (5)
  1. CRESTOR [Suspect]
     Indication: BLOOD CHOLESTEROL INCREASED
     Dosage: UNKNOWN DAILY
     Route: 048
     Dates: start: 201401, end: 201402
  2. LEVOTHYROXINE [Suspect]
     Indication: HYPOTHYROIDISM
     Route: 048
  3. LEVOTHYROXINE [Suspect]
     Indication: THYROID DISORDER
     Route: 048
  4. LEVOTHYROXINE [Suspect]
     Indication: HYPOTHYROIDISM
     Route: 048
     Dates: start: 2010
  5. LEVOTHYROXINE [Suspect]
     Indication: THYROID DISORDER
     Route: 048
     Dates: start: 2010

REACTIONS (1)
  - Anaphylactic reaction [Recovering/Resolving]
